FAERS Safety Report 7779171 (Version 4)
Quarter: 2014Q3

REPORT INFORMATION
  Report Type: Spontaneous
  Country: US (occurrence: US)
  Receive Date: 20110128
  Receipt Date: 20140902
  Transmission Date: 20150326
  Serious: Yes (Other)
  Sender: FDA-Public Use
  Company Number: CHPA2011US01474

PATIENT
  Age: 75 Year
  Sex: Female
  Weight: 62.59 kg

DRUGS (2)
  1. VOLTAREN [Suspect]
     Active Substance: DICLOFENAC SODIUM
     Indication: ARTHRITIS
     Dosage: UNK, UNK
     Route: 061
     Dates: start: 201005
  2. VOLTAREN [Suspect]
     Active Substance: DICLOFENAC SODIUM
     Indication: PROCEDURAL PAIN

REACTIONS (5)
  - Therapeutic response changed [Unknown]
  - Off label use [Unknown]
  - Drug administered at inappropriate site [Unknown]
  - Surgery [Unknown]
  - Wrong technique in drug usage process [Unknown]

NARRATIVE: CASE EVENT DATE: 2010
